FAERS Safety Report 14347948 (Version 1)
Quarter: 2018Q1

REPORT INFORMATION
  Report Type: Spontaneous
  Country: FR (occurrence: FR)
  Receive Date: 20180103
  Receipt Date: 20180103
  Transmission Date: 20180509
  Serious: Yes (Hospitalization)
  Sender: FDA-Public Use
  Company Number: FR-MYLANLABS-2018M1000056

PATIENT
  Age: 64 Year
  Sex: Female
  Weight: 61 kg

DRUGS (2)
  1. CYTARABINE. [Suspect]
     Active Substance: CYTARABINE
     Indication: ACUTE MYELOID LEUKAEMIA
     Dosage: 340 MG, DAILY CYCLIC (FROM D1 TO D7)
     Route: 042
     Dates: start: 20171009
  2. IDARUBICIN [Suspect]
     Active Substance: IDARUBICIN
     Indication: ACUTE MYELOID LEUKAEMIA
     Dosage: 20 MG, DAILY (CYCLIC FROM D1 TO D3).
     Route: 042
     Dates: start: 20171009

REACTIONS (1)
  - Corynebacterium infection [Recovering/Resolving]

NARRATIVE: CASE EVENT DATE: 20171025
